FAERS Safety Report 13397703 (Version 2)
Quarter: 2017Q2

REPORT INFORMATION
  Report Type: Report from Study
  Country: US (occurrence: US)
  Receive Date: 20170403
  Receipt Date: 20170630
  Transmission Date: 20170830
  Serious: Yes (Other)
  Sender: FDA-Public Use
  Company Number: US-AMGEN-USASL2017047957

PATIENT
  Age: 72 Year
  Sex: Female

DRUGS (1)
  1. REPATHA [Suspect]
     Active Substance: EVOLOCUMAB
     Indication: LOW DENSITY LIPOPROTEIN ABNORMAL
     Dosage: 140 MG, Q2WK
     Route: 065

REACTIONS (8)
  - Faeces discoloured [Unknown]
  - Arthritis [Unknown]
  - Memory impairment [Not Recovered/Not Resolved]
  - Injection site pain [Unknown]
  - Ovarian disorder [Unknown]
  - Pain in extremity [Unknown]
  - Wrong technique in product usage process [Unknown]
  - Diarrhoea [Unknown]
